FAERS Safety Report 24861488 (Version 2)
Quarter: 2025Q1

REPORT INFORMATION
  Report Type: Report from Study
  Country: US (occurrence: US)
  Receive Date: 20250120
  Receipt Date: 20250221
  Transmission Date: 20250409
  Serious: Yes (Hospitalization)
  Sender: ABBVIE
  Company Number: US-ABBVIE-6089588

PATIENT
  Sex: Male

DRUGS (2)
  1. SKYRIZI [Suspect]
     Active Substance: RISANKIZUMAB-RZAA
     Indication: Psoriatic arthropathy
     Route: 058
     Dates: start: 20240401, end: 20240401
  2. GABAPENTIN [Concomitant]
     Active Substance: GABAPENTIN
     Indication: Neuropathy peripheral

REACTIONS (11)
  - Gangrene [Unknown]
  - Blood glucose increased [Recovered/Resolved]
  - Asthenia [Unknown]
  - Diabetes mellitus [Unknown]
  - Pain in extremity [Unknown]
  - Hyperglycaemia [Unknown]
  - Inflammation [Not Recovered/Not Resolved]
  - Limb injury [Recovering/Resolving]
  - Hypophagia [Unknown]
  - Limb injury [Recovering/Resolving]
  - Thermal burn [Recovering/Resolving]
